FAERS Safety Report 8711947 (Version 3)
Quarter: 2012Q4

REPORT INFORMATION
  Report Type: 
  Country: US (occurrence: US)
  Receive Date: 20120807
  Receipt Date: 20120905
  Transmission Date: 20130627
  Serious: Yes (Hospitalization)
  Sender: FDA-Public Use
  Company Number: US-GILEAD-2012-0059189

PATIENT
  Sex: Female

DRUGS (2)
  1. LETAIRIS [Suspect]
     Indication: ESSENTIAL HYPERTENSION
     Dosage: 10 mg, UNK
     Route: 048
     Dates: start: 20090116
  2. WARFARIN [Suspect]

REACTIONS (4)
  - Overdose [Unknown]
  - Compartment syndrome [Unknown]
  - Thrombosis [Unknown]
  - Weight decreased [Unknown]
